FAERS Safety Report 20985254 (Version 1)
Quarter: 2022Q2

REPORT INFORMATION
  Report Type: Spontaneous
  Country: RO (occurrence: RO)
  Receive Date: 20220621
  Receipt Date: 20220621
  Transmission Date: 20220720
  Serious: Yes (Other)
  Sender: FDA-Public Use
  Company Number: RO-ABBVIE-22K-135-4428439-00

PATIENT
  Age: 51 Year
  Sex: Female

DRUGS (1)
  1. ADALIMUMAB [Suspect]
     Active Substance: ADALIMUMAB
     Indication: Product used for unknown indication
     Dosage: 40 MILLIGRAM
     Route: 058
     Dates: start: 2011, end: 202106

REACTIONS (7)
  - Crohn^s disease [Unknown]
  - Nail disorder [Unknown]
  - Red blood cell sedimentation rate abnormal [Unknown]
  - Joint swelling [Unknown]
  - C-reactive protein abnormal [Unknown]
  - Joint effusion [Unknown]
  - Synovitis [Unknown]

NARRATIVE: CASE EVENT DATE: 20160101
